FAERS Safety Report 24581432 (Version 1)
Quarter: 2024Q4

REPORT INFORMATION
  Report Type: Spontaneous
  Country: US (occurrence: US)
  Receive Date: 20241105
  Receipt Date: 20241105
  Transmission Date: 20250114
  Serious: Yes (Other)
  Sender: JOHNSON AND JOHNSON
  Company Number: US-JNJFOC-20241083517

PATIENT
  Sex: Male

DRUGS (1)
  1. TALVEY [Suspect]
     Active Substance: TALQUETAMAB-TGVS
     Indication: Product used for unknown indication
     Route: 065

REACTIONS (8)
  - Pneumonia [Unknown]
  - Cytokine release syndrome [Unknown]
  - Dysgeusia [Unknown]
  - Ageusia [Unknown]
  - Dysphagia [Unknown]
  - Dry mouth [Unknown]
  - Onycholysis [Unknown]
  - Conjunctivitis [Unknown]
